FAERS Safety Report 5774930-2 (Version None)
Quarter: 2008Q2

REPORT INFORMATION
  Report Type: 
  Country: None (occurrence: None)
  Receive Date: 20080617
  Receipt Date: 20080606
  Transmission Date: 20081010
  Serious: Yes (Other)
  Sender: FDA-Public Use
  Company Number: US-ROCHE-568836

PATIENT
  Sex: Male
  Weight: 60.3 kg

DRUGS (8)
  1. BONIVA [Suspect]
     Indication: OSTEOPOROSIS
     Dosage: DOSAGE REDUCED
     Route: 048
     Dates: start: 20070101, end: 20080501
  2. BONIVA [Suspect]
     Route: 048
  3. PREDNISONE TAB [Suspect]
     Route: 048
     Dates: start: 20060601
  4. PREDNISONE TAB [Suspect]
     Route: 048
  5. TRIAMTERENE [Concomitant]
  6. UNKNOWN HYPERTENSION DRUG [Concomitant]
  7. PRILOSEC [Concomitant]
  8. VITAMIN [Concomitant]

REACTIONS (1)
  - RENAL IMPAIRMENT [None]
